FAERS Safety Report 8905301 (Version 2)
Quarter: 2012Q4

REPORT INFORMATION
  Report Type: 
  Country: HR (occurrence: HR)
  Receive Date: 20121112
  Receipt Date: 20121121
  Transmission Date: 20130627
  Serious: Yes (Other)
  Sender: FDA-Public Use
  Company Number: HR-RANBAXY-2012RR-61753

PATIENT
  Age: 78 Year
  Sex: Female

DRUGS (1)
  1. ACICLOVIR [Suspect]
     Indication: HERPES ZOSTER
     Dosage: 5 x 800 mg
     Route: 048

REACTIONS (2)
  - Neurotoxicity [Recovered/Resolved]
  - Confusional state [Recovered/Resolved]
